FAERS Safety Report 7049369-2 (Version None)
Quarter: 2010Q4

REPORT INFORMATION
  Report Type: 
  Country: None (occurrence: None)
  Receive Date: 20101018
  Receipt Date: 20101008
  Transmission Date: 20110411
  Serious: Yes (Death, Other)
  Sender: FDA-Public Use
  Company Number: BR-ROCHE-732014

PATIENT
  Age: 16 Month
  Sex: Male

DRUGS (2)
  1. DIAZEPAM [Suspect]
     Route: 065
     Dates: start: 20100911, end: 20100911
  2. PHENYTOIN [Suspect]
     Route: 065
     Dates: start: 20100911, end: 20100911

REACTIONS (2)
  - ASPIRATION [None]
  - VOMITING [None]
